FAERS Safety Report 4733620-5 (Version None)
Quarter: 2005Q3

REPORT INFORMATION
  Report Type: 
  Country: None (occurrence: None)
  Receive Date: 20050729
  Receipt Date: 20050720
  Transmission Date: 20060218
  Serious: Yes (Other)
  Sender: FDA-Public Use
  Company Number: 2005106281

PATIENT
  Age: 36 Year
  Sex: Male

DRUGS (2)
  1. SOLU-MEDROL [Suspect]
     Indication: VOGT-KOYANAGI-HARADA SYNDROME
     Dosage: 1000 MG, INTRAVENOUS
     Route: 042
  2. PREDNISONE [Suspect]
     Indication: VOGT-KOYANAGI-HARADA SYNDROME
     Dosage: 65 MG

REACTIONS (4)
  - OPTIC DISC DISORDER [None]
  - RETINAL DETACHMENT [None]
  - RETINAL PIGMENT EPITHELIOPATHY [None]
  - VOGT-KOYANAGI-HARADA SYNDROME [None]
